FAERS Safety Report 12217934 (Version 1)
Quarter: 2016Q1

REPORT INFORMATION
  Report Type: Spontaneous
  Country: FR (occurrence: FR)
  Receive Date: 20160329
  Receipt Date: 20160329
  Transmission Date: 20160526
  Serious: Yes (Death, Hospitalization)
  Sender: FDA-Public Use
  Company Number: FR-PFIZER INC-2016176206

PATIENT
  Age: 44 Year
  Sex: Female

DRUGS (5)
  1. DOLIPRANE [Suspect]
     Active Substance: ACETAMINOPHEN
     Dosage: 32000 MG, SINGLE
     Route: 048
     Dates: start: 201602, end: 201602
  2. RILMENIDINE [Suspect]
     Active Substance: RILMENIDINE
     Dosage: 63 MG, SINGLE
     Route: 048
     Dates: start: 201602, end: 201602
  3. DONORMYL /00334102/ [Suspect]
     Active Substance: DOXYLAMINE SUCCINATE
     Dosage: 300 MG, SINGLE
     Route: 048
     Dates: start: 201602, end: 201602
  4. AMLOR [Suspect]
     Active Substance: AMLODIPINE BESYLATE
     Dosage: 360 MG, SINGLE
     Route: 048
     Dates: start: 201602, end: 201602
  5. FUROSEMIDE. [Suspect]
     Active Substance: FUROSEMIDE
     Dosage: 260 MG, SINGLE
     Route: 048
     Dates: start: 201602, end: 201602

REACTIONS (5)
  - Multiple organ dysfunction syndrome [Fatal]
  - Hypotension [Not Recovered/Not Resolved]
  - Somnolence [Not Recovered/Not Resolved]
  - Cardiogenic shock [Fatal]
  - Shock [Fatal]

NARRATIVE: CASE EVENT DATE: 201602
